FAERS Safety Report 23858583 (Version 1)
Quarter: 2024Q2

REPORT INFORMATION
  Report Type: Spontaneous
  Country: US (occurrence: US)
  Receive Date: 20240515
  Receipt Date: 20240515
  Transmission Date: 20240716
  Serious: Yes (Hospitalization)
  Sender: FDA-Public Use
  Company Number: US-BIOVITRUM-2024-US-006985

PATIENT
  Age: 28 Year
  Sex: Female

DRUGS (1)
  1. KINERET [Suspect]
     Active Substance: ANAKINRA
     Indication: Still^s disease
     Dosage: DAILY
     Route: 058
     Dates: start: 20230929

REACTIONS (14)
  - Intentional product misuse [Not Recovered/Not Resolved]
  - Lymphadenitis [Unknown]
  - Pyrexia [Unknown]
  - Heart rate increased [Unknown]
  - Blood pressure decreased [Unknown]
  - Rash [Unknown]
  - Skin burning sensation [Unknown]
  - Stress [Unknown]
  - Loss of personal independence in daily activities [Unknown]
  - General physical health deterioration [Unknown]
  - Emotional disorder [Unknown]
  - Pain [Unknown]
  - Depressed mood [Unknown]
  - Social problem [Unknown]

NARRATIVE: CASE EVENT DATE: 20230929
